FAERS Safety Report 17508171 (Version 1)
Quarter: 2020Q1

REPORT INFORMATION
  Report Type: Spontaneous
  Country: US (occurrence: US)
  Receive Date: 20200225
  Receipt Date: 20200225
  Transmission Date: 20200409
  Serious: Yes (Hospitalization)
  Sender: FDA-Public Use
  Company Number: None

PATIENT
  Sex: Female

DRUGS (1)
  1. IBRANCE [Suspect]
     Active Substance: PALBOCICLIB
     Indication: BREAST CANCER
     Route: 048
     Dates: start: 20200110, end: 20200201

REACTIONS (5)
  - Stomatitis [None]
  - White blood cell count increased [None]
  - Oesophageal irritation [None]
  - Decreased appetite [None]
  - Vomiting [None]
